FAERS Safety Report 5196985-9 (Version None)
Quarter: 2006Q4

REPORT INFORMATION
  Report Type: 
  Country: None (occurrence: None)
  Receive Date: 20061227
  Receipt Date: 20061215
  Transmission Date: 20070319
  Serious: Yes (Hospitalization, Other)
  Sender: FDA-Public Use
  Company Number: 2006154106

PATIENT
  Age: 66 Year
  Sex: Female

DRUGS (2)
  1. METHYLPREDNISOLONE SODIUM SUCCINATE [Suspect]
     Indication: ENDOCRINE OPHTHALMOPATHY
     Dosage: 1 GRAM (1 IN 1 D), INTRAVENOUS
     Route: 042
  2. LEVOTHYROXINE SODIUM [Concomitant]

REACTIONS (16)
  - ABDOMINAL PAIN [None]
  - AKINESIA [None]
  - AORTIC VALVE DISEASE [None]
  - BACK PAIN [None]
  - BLOOD CHOLESTEROL INCREASED [None]
  - BLOOD PRESSURE INCREASED [None]
  - CARDIAC DISORDER [None]
  - CONDITION AGGRAVATED [None]
  - CORONARY ARTERY OCCLUSION [None]
  - DILATATION ATRIAL [None]
  - DISCOMFORT [None]
  - ENDOCRINE OPHTHALMOPATHY [None]
  - MITRAL VALVE INCOMPETENCE [None]
  - MYOCARDIAL ISCHAEMIA [None]
  - PAIN IN EXTREMITY [None]
  - TRICUSPID VALVE INCOMPETENCE [None]
